FAERS Safety Report 7296176-1 (Version None)
Quarter: 2011Q1

REPORT INFORMATION
  Report Type: 
  Country: None (occurrence: None)
  Receive Date: 20110216
  Receipt Date: 20110210
  Transmission Date: 20110831
  Serious: Yes (Other)
  Sender: FDA-Public Use
  Company Number: US-PFIZER INC-US-WYE-H17968610

PATIENT
  Sex: Female

DRUGS (12)
  1. NEURONTIN [Suspect]
     Dosage: 600 MG, 3X/DAY
     Route: 065
     Dates: end: 20100901
  2. CELEXA [Concomitant]
  3. VISTARIL [Concomitant]
  4. ADVAIR [Concomitant]
  5. PROTONIX [Concomitant]
  6. IMITREX [Concomitant]
  7. SALBUTAMOL [Concomitant]
  8. PRISTIQ [Suspect]
     Indication: GENERALISED ANXIETY DISORDER
     Dosage: 50 MG, 1X/DAY
     Route: 065
     Dates: start: 20100922
  9. TRANXENE [Concomitant]
  10. RANITIDINE [Concomitant]
  11. NEURONTIN [Suspect]
     Dosage: INCREASED TO UNKNOWN DOSE
     Route: 065
     Dates: start: 20100901, end: 20100901
  12. LEVOTHYROXINE [Concomitant]

REACTIONS (7)
  - TONGUE DISORDER [None]
  - CANDIDIASIS [None]
  - MUSCULOSKELETAL STIFFNESS [None]
  - JOINT STIFFNESS [None]
  - DRUG INTERACTION [None]
  - ARTHRALGIA [None]
  - PAIN IN EXTREMITY [None]
